FAERS Safety Report 22298802 (Version 1)
Quarter: 2023Q2

REPORT INFORMATION
  Report Type: Spontaneous
  Country: US (occurrence: None)
  Receive Date: 20230508
  Receipt Date: 20230508
  Transmission Date: 20230721
  Serious: No
  Sender: FDA-Public Use
  Company Number: None

PATIENT
  Age: 48 Year
  Sex: Female

DRUGS (1)
  1. AJOVY [Suspect]
     Active Substance: FREMANEZUMAB-VFRM
     Indication: Migraine
     Dosage: 225MG EVERY MONTH SUB-Q?
     Route: 058
     Dates: start: 202212

REACTIONS (4)
  - Device malfunction [None]
  - Device defective [None]
  - Drug dose omission by device [None]
  - Migraine [None]

NARRATIVE: CASE EVENT DATE: 20230412
